FAERS Safety Report 23263294 (Version 1)
Quarter: 2023Q4

REPORT INFORMATION
  Report Type: Spontaneous
  Country: GB (occurrence: None)
  Receive Date: 20231204
  Receipt Date: 20231204
  Transmission Date: 20240109
  Serious: Yes (Disabling)
  Sender: FDA-Public Use
  Company Number: None

PATIENT
  Age: 61 Year
  Sex: Female
  Weight: 68.4 kg

DRUGS (14)
  1. CIPROFLOXACIN [Suspect]
     Active Substance: CIPROFLOXACIN
     Indication: Pneumonia pseudomonal
     Dates: start: 20180121, end: 20180204
  2. PREDNISOLONE [Concomitant]
     Active Substance: PREDNISOLONE
  3. AZITHROMYCIN [Concomitant]
     Active Substance: AZITHROMYCIN
  4. CARBOCYSTEINE [Concomitant]
     Active Substance: CARBOCYSTEINE
  5. LISINOPRIL [Concomitant]
     Active Substance: LISINOPRIL
  6. MOMETASONE [Concomitant]
     Active Substance: MOMETASONE
  7. SYMBICORT [Concomitant]
     Active Substance: BUDESONIDE\FORMOTEROL FUMARATE DIHYDRATE
  8. Evorel Conti HRT patches [Concomitant]
  9. ASCORBIC ACID [Concomitant]
     Active Substance: ASCORBIC ACID
  10. VITAMINS D3 [Concomitant]
  11. Vitamins K2 [Concomitant]
  12. MAGNESIUM GLYCINATE [Concomitant]
     Active Substance: MAGNESIUM GLYCINATE
  13. COENZYME Q10 [Concomitant]
     Active Substance: DIETARY SUPPLEMENT\UBIDECARENONE
  14. Glucosamine/CHONDROITIN [Concomitant]

REACTIONS (4)
  - Neuralgia [None]
  - Myalgia [None]
  - Muscle contractions involuntary [None]
  - Tendon injury [None]

NARRATIVE: CASE EVENT DATE: 20180121
